FAERS Safety Report 14835983 (Version 1)
Quarter: 2018Q2

REPORT INFORMATION
  Report Type: Spontaneous
  Country: US (occurrence: US)
  Receive Date: 20180502
  Receipt Date: 20180502
  Transmission Date: 20180711
  Serious: Yes (Hospitalization, Other)
  Sender: FDA-Public Use
  Company Number: US-009507513-1804USA012058

PATIENT
  Age: 63 Year
  Sex: Male

DRUGS (2)
  1. MITOMYCIN. [Suspect]
     Active Substance: MITOMYCIN
     Indication: TRANSITIONAL CELL CARCINOMA
     Dosage: UNK
     Dates: start: 2016
  2. TICE BCG [Suspect]
     Active Substance: BACILLUS CALMETTE-GUERIN SUBSTRAIN TICE LIVE ANTIGEN
     Indication: TRANSITIONAL CELL CARCINOMA
     Dosage: UNK
     Dates: start: 2016

REACTIONS (4)
  - Clear cell renal cell carcinoma [Unknown]
  - Metastases to lymph nodes [Recovered/Resolved]
  - Transitional cell carcinoma recurrent [Unknown]
  - Metastases to pelvis [Not Recovered/Not Resolved]

NARRATIVE: CASE EVENT DATE: 201607
